FAERS Safety Report 18035591 (Version 1)
Quarter: 2020Q3

REPORT INFORMATION
  Report Type: Spontaneous
  Country: US (occurrence: US)
  Receive Date: 20200716
  Receipt Date: 20200716
  Transmission Date: 20201103
  Serious: Yes (Hospitalization)
  Sender: FDA-Public Use
  Company Number: None

PATIENT
  Sex: Female

DRUGS (1)
  1. EVENITY [Suspect]
     Active Substance: ROMOSOZUMAB-AQQG
     Indication: SENILE OSTEOPOROSIS
     Dosage: ?          OTHER FREQUENCY:QM;?
     Route: 058
     Dates: start: 20190815

REACTIONS (1)
  - Surgery [None]
